FAERS Safety Report 20204128 (Version 1)
Quarter: 2021Q4

REPORT INFORMATION
  Report Type: Spontaneous
  Country: ES (occurrence: ES)
  Receive Date: 20211220
  Receipt Date: 20211220
  Transmission Date: 20220304
  Serious: Yes (Life-Threatening, Other)
  Sender: FDA-Public Use
  Company Number: None

PATIENT
  Age: 46 Year
  Sex: Female
  Weight: 76 kg

DRUGS (16)
  1. KEYTRUDA [Suspect]
     Active Substance: PEMBROLIZUMAB
     Indication: B-cell lymphoma
     Dosage: 2MG/KG EVERY 21 DAYS, STRENGTH : 25 MG/ML, FORMULATION : CONCENTRATE FOR SOLUTION FOR INFUSION, (1 V
     Route: 042
     Dates: start: 20211001
  2. NEXUM MUPS [Concomitant]
     Dosage: UNK
  3. HIBOR [Concomitant]
     Dosage: ANTI-XA / 0.4 ML INJECTABLE SOLUTION IN PRE-FILLED SYRINGES
  4. URSODIOL [Concomitant]
     Active Substance: URSODIOL
     Dosage: UNK
  5. AMLODIPINE [Concomitant]
     Active Substance: AMLODIPINE BESYLATE
     Dosage: UNK
  6. ENALAPRIL [Concomitant]
     Active Substance: ENALAPRIL
     Dosage: UNK
  7. PENTASA [Concomitant]
     Active Substance: MESALAMINE
     Dosage: UNK
  8. SULFAMETHOXAZOLE\TRIMETHOPRIM [Concomitant]
     Active Substance: SULFAMETHOXAZOLE\TRIMETHOPRIM
     Dosage: UNK
  9. LEVOTHYROXINE SODIUM [Concomitant]
     Active Substance: LEVOTHYROXINE SODIUM
     Dosage: UNK
  10. LEVETIRACETAM [Concomitant]
     Active Substance: LEVETIRACETAM
     Dosage: UNK
  11. VENLAFAXINE HYDROCHLORIDE [Concomitant]
     Active Substance: VENLAFAXINE HYDROCHLORIDE
     Dosage: UNK
  12. ALLOPURINOL [Concomitant]
     Active Substance: ALLOPURINOL
     Dosage: UNK
  13. CALCIFEDIOL [Concomitant]
     Active Substance: CALCIFEDIOL
     Dosage: UNK
  14. FENTANYL [Concomitant]
     Active Substance: FENTANYL
     Dosage: STRENGTH : 25 MICROGRAMS/HOUR
  15. FOLIC ACID [Concomitant]
     Active Substance: FOLIC ACID
     Dosage: UNK
  16. AREMIS [SERTRALINE HYDROCHLORIDE] [Concomitant]
     Dosage: UNK

REACTIONS (1)
  - Colitis [Not Recovered/Not Resolved]

NARRATIVE: CASE EVENT DATE: 20211026
